FAERS Safety Report 7646850-X (Version None)
Quarter: 2011Q3

REPORT INFORMATION
  Report Type: 
  Country: None (occurrence: None)
  Receive Date: 20110801
  Receipt Date: 20110718
  Transmission Date: 20111222
  Serious: Yes (Hospitalization)
  Sender: FDA-Public Use
  Company Number: FR-SANOFI-AVENTIS-2011SA045479

PATIENT
  Age: 53 Year
  Sex: Female

DRUGS (4)
  1. RIFADIN [Suspect]
     Indication: TUBERCULOSIS
     Route: 048
     Dates: start: 20100820, end: 20100830
  2. PRIMPERAN TAB [Suspect]
     Indication: NAUSEA
     Route: 051
     Dates: start: 20100830, end: 20100830
  3. RIMIFON [Suspect]
     Indication: TUBERCULOSIS
     Route: 048
     Dates: start: 20100820, end: 20100830
  4. RIFAMPIN AND ISONIAZID [Suspect]
     Indication: TUBERCULOSIS
     Dosage: DOSE:2 UNIT(S)
     Route: 048
     Dates: start: 20100820, end: 20100830

REACTIONS (5)
  - LOSS OF CONSCIOUSNESS [None]
  - CONVULSION [None]
  - NAUSEA [None]
  - APHASIA [None]
  - AMNESIA [None]
